FAERS Safety Report 9805179 (Version 2)
Quarter: 2014Q1

REPORT INFORMATION
  Report Type: Spontaneous
  Country: IT (occurrence: IT)
  Receive Date: 20140109
  Receipt Date: 20140228
  Transmission Date: 20141002
  Serious: Yes (Hospitalization, Other)
  Sender: FDA-Public Use
  Company Number: IT-BRISTOL-MYERS SQUIBB COMPANY-19962216

PATIENT
  Age: 76 Year
  Sex: Male
  Weight: 87 kg

DRUGS (7)
  1. ONGLYZA TABS 5 MG [Suspect]
     Indication: DIABETES MELLITUS
     Route: 048
     Dates: start: 20130801, end: 20131028
  2. TAVANIC [Interacting]
     Indication: BRONCHITIS
     Dosage: 1DF=500 UNITS NOS
     Route: 048
     Dates: start: 20131026, end: 20131028
  3. GLUCOBAY [Interacting]
     Indication: DIABETES MELLITUS
     Dosage: TABS
     Route: 048
     Dates: start: 20130801, end: 20131028
  4. TANDEMACT [Interacting]
     Indication: DIABETES MELLITUS
     Dosage: 1DF=30MG/4MG TABS
     Route: 048
     Dates: start: 20130801, end: 20131028
  5. TRIATEC HCT [Concomitant]
     Indication: HYPERTENSION
     Dosage: 1DF=2.5MG + 12.5MG TAB
     Route: 048
     Dates: start: 20130101, end: 20131028
  6. SELOKEN [Concomitant]
     Indication: HYPERTENSION
     Dosage: 1DF=0.5 DOSE?100MG TABS
     Route: 048
     Dates: start: 20130101, end: 20131028
  7. CARDURA [Concomitant]
     Indication: PROPHYLAXIS
     Dosage: TABS
     Route: 048
     Dates: start: 20130101, end: 20131028

REACTIONS (3)
  - Hypoglycaemic coma [Recovered/Resolved]
  - Confusional state [Recovered/Resolved]
  - Drug interaction [Unknown]
